FAERS Safety Report 26010225 (Version 1)
Quarter: 2025Q4

REPORT INFORMATION
  Report Type: Spontaneous
  Country: US (occurrence: US)
  Receive Date: 20251107
  Receipt Date: 20251107
  Transmission Date: 20260118
  Serious: No
  Sender: ELI LILLY AND COMPANY
  Company Number: US-ELI_LILLY_AND_COMPANY-US202510032099

PATIENT
  Age: 57 Year
  Sex: Female

DRUGS (7)
  1. ZEPBOUND [Suspect]
     Active Substance: TIRZEPATIDE
     Indication: Sleep apnoea syndrome
     Dosage: 10 MG, UNKNOWN
     Route: 065
     Dates: start: 20250929, end: 20251006
  2. ZEPBOUND [Suspect]
     Active Substance: TIRZEPATIDE
     Indication: Sleep apnoea syndrome
     Dosage: 10 MG, UNKNOWN
     Route: 065
     Dates: start: 20250929, end: 20251006
  3. ZEPBOUND [Suspect]
     Active Substance: TIRZEPATIDE
     Indication: Blood pressure increased
  4. ZEPBOUND [Suspect]
     Active Substance: TIRZEPATIDE
     Indication: Blood pressure increased
  5. LOSARTAN [Concomitant]
     Active Substance: LOSARTAN
     Indication: Blood pressure increased
  6. METOPROLOL [Concomitant]
     Active Substance: METOPROLOL
     Indication: Hypertension
  7. AMLODIPINE [Concomitant]
     Active Substance: AMLODIPINE BESYLATE
     Indication: Hypertension

REACTIONS (1)
  - Incorrect dose administered [Unknown]

NARRATIVE: CASE EVENT DATE: 20250929
